FAERS Safety Report 18717830 (Version 1)
Quarter: 2021Q1

REPORT INFORMATION
  Report Type: Spontaneous
  Country: US (occurrence: US)
  Receive Date: 20210108
  Receipt Date: 20210108
  Transmission Date: 20210419
  Serious: Yes (Hospitalization, Other)
  Sender: FDA-Public Use
  Company Number: US-009507513-2101USA001346

PATIENT

DRUGS (31)
  1. FOSAMAX [Suspect]
     Active Substance: ALENDRONATE SODIUM
     Dosage: 70 MG WEEKLY
     Route: 048
     Dates: start: 20050420, end: 20080526
  2. LIPITOR [Concomitant]
     Active Substance: ATORVASTATIN CALCIUM
     Dosage: UNK
  3. ACTONEL [Suspect]
     Active Substance: RISEDRONATE SODIUM
     Dosage: 5 MG DAILY
     Route: 048
     Dates: start: 20001005, end: 200112
  4. ACTONEL [Suspect]
     Active Substance: RISEDRONATE SODIUM
     Dosage: 5 MILLIGRAM, DAILY
     Route: 048
     Dates: start: 20011210, end: 200203
  5. ERY?TAB [Concomitant]
     Active Substance: ERYTHROMYCIN
     Dosage: UNK
  6. VIOXX [Concomitant]
     Active Substance: ROFECOXIB
     Dosage: UNK
  7. VITAMINS (UNSPECIFIED) [Concomitant]
     Active Substance: VITAMINS
     Dosage: UNK
  8. ZITHROMAX [Concomitant]
     Active Substance: AZITHROMYCIN DIHYDRATE
     Dosage: UNK
  9. ACTONEL [Suspect]
     Active Substance: RISEDRONATE SODIUM
     Dosage: 35 MILLIGRAM WEEKLY
     Route: 048
     Dates: start: 20040531, end: 200504
  10. FLONASE [Concomitant]
     Active Substance: FLUTICASONE PROPIONATE
     Dosage: UNK
  11. BENZONATATE. [Concomitant]
     Active Substance: BENZONATATE
     Dosage: UNK
  12. CIPROFLOXACIN. [Concomitant]
     Active Substance: CIPROFLOXACIN
     Dosage: UNK
  13. BEXTRA (PARECOXIB SODIUM) [Concomitant]
     Active Substance: PARECOXIB SODIUM
     Dosage: UNK
  14. ACTONEL [Suspect]
     Active Substance: RISEDRONATE SODIUM
     Dosage: 30 MILLIGRAM WEEKLY
     Route: 048
     Dates: start: 200311, end: 200511
  15. FEMHRT [Concomitant]
     Active Substance: ETHINYL ESTRADIOL\NORETHINDRONE ACETATE
     Dosage: UNK
  16. ASPIRIN. [Concomitant]
     Active Substance: ASPIRIN
     Dosage: UNK
  17. CLARINEX (LORATADINE (+) PSEUDOEPHEDRINE SULFATE) [Concomitant]
     Dosage: UNK
  18. TENORMIN [Concomitant]
     Active Substance: ATENOLOL
     Dosage: UNK
  19. LOMOTIL (LOPERAMIDE HYDROCHLORIDE) [Concomitant]
     Active Substance: LOPERAMIDE HYDROCHLORIDE
     Dosage: UNK
  20. ANAPROX [Concomitant]
     Active Substance: NAPROXEN SODIUM
     Dosage: UNK
  21. ACTONEL [Suspect]
     Active Substance: RISEDRONATE SODIUM
     Dosage: 30 MILLIGRAM WEEKLY
     Route: 048
     Dates: start: 20030331, end: 200405
  22. OSCAL [Concomitant]
     Active Substance: CALCIUM CARBONATE
     Dosage: UNK
  23. BIAXIN [Concomitant]
     Active Substance: CLARITHROMYCIN
     Dosage: UNK
  24. FOSAMAX [Suspect]
     Active Substance: ALENDRONATE SODIUM
     Dosage: 70 MG ONCE WEEKLY
     Route: 048
     Dates: start: 20080526, end: 201005
  25. ACTONEL [Suspect]
     Active Substance: RISEDRONATE SODIUM
     Dosage: 35 MILLIGRAM WEEKLY
     Route: 048
     Dates: start: 20020712, end: 20020815
  26. HYDROCHLOROTHIAZIDE. [Concomitant]
     Active Substance: HYDROCHLOROTHIAZIDE
     Dosage: UNK
  27. LOESTRIN NOS [Concomitant]
     Active Substance: ETHINYL ESTRADIOL\NORETHINDRONE ACETATE
     Dosage: UNK
  28. CLARITIN [Concomitant]
     Active Substance: LORATADINE
     Dosage: UNK
  29. CEFTIN [Concomitant]
     Active Substance: CEFUROXIME AXETIL
     Dosage: UNK
  30. ACTONEL [Suspect]
     Active Substance: RISEDRONATE SODIUM
     Dosage: 5 MG DAILY
     Route: 048
     Dates: start: 20020314, end: 200207
  31. ACTONEL [Suspect]
     Active Substance: RISEDRONATE SODIUM
     Dosage: 5 MILLIGRAM, DAILY
     Route: 048
     Dates: start: 20020815, end: 200303

REACTIONS (12)
  - Drug ineffective [Unknown]
  - Bone disorder [Unknown]
  - Femur fracture [Recovered/Resolved]
  - Pain [Recovered/Resolved]
  - Fracture displacement [Recovered/Resolved]
  - Pain in extremity [Unknown]
  - Low turnover osteopathy [Unknown]
  - Post procedural cellulitis [Unknown]
  - Incorrect product administration duration [Unknown]
  - Fall [Recovered/Resolved]
  - Wound dehiscence [Unknown]
  - Pathological fracture [Recovered/Resolved]

NARRATIVE: CASE EVENT DATE: 200311
